FAERS Safety Report 4343680-1 (Version None)
Quarter: 2004Q2

REPORT INFORMATION
  Report Type: 
  Country: None (occurrence: None)
  Receive Date: 20040422
  Receipt Date: 20040123
  Transmission Date: 20050107
  Serious: Yes (Death)
  Sender: FDA-Public Use
  Company Number: 200410556US

PATIENT
  Sex: Male
  Weight: 29.9 kg

DRUGS (3)
  1. LANTUS [Suspect]
     Indication: DIABETES MELLITUS INSULIN-DEPENDENT
     Dosage: DOSE UNIT: UNITS
     Route: 058
     Dates: start: 20011222, end: 20011229
  2. NPH INSULIN [Concomitant]
     Dosage: DOSE UNIT: UNITS
     Route: 058
     Dates: start: 20011222, end: 20011229
  3. HUMALOG [Concomitant]
     Dosage: DOSE: 1-2; DOSE UNIT: UNITS
     Route: 058
     Dates: start: 20011222, end: 20011229

REACTIONS (10)
  - APNOEA [None]
  - BLOOD BICARBONATE DECREASED [None]
  - BLOOD CALCIUM DECREASED [None]
  - BLOOD CHLORIDE INCREASED [None]
  - BLOOD CREATININE DECREASED [None]
  - BLOOD POTASSIUM INCREASED [None]
  - CARDIAC ARREST [None]
  - CARDIO-RESPIRATORY ARREST [None]
  - COMA [None]
  - DIABETIC COMPLICATION [None]
